FAERS Safety Report 5309191-1 (Version None)
Quarter: 2007Q2

REPORT INFORMATION
  Report Type: 
  Country: None (occurrence: None)
  Receive Date: 20070423
  Receipt Date: 20070410
  Transmission Date: 20071010
  Serious: Yes (Other)
  Sender: FDA-Public Use
  Company Number: 2007BI005893

PATIENT
  Age: 60 Year
  Sex: Female

DRUGS (5)
  1. AVONEX [Suspect]
     Indication: MULTIPLE SCLEROSIS
     Dosage: 30 UG; QW; IM
     Route: 030
     Dates: start: 20040929
  2. AMBIEN [Concomitant]
  3. CLARITIN [Concomitant]
  4. TRAZODONE HCL [Concomitant]
  5. INTERFERON [Concomitant]

REACTIONS (5)
  - HEADACHE [None]
  - ILL-DEFINED DISORDER [None]
  - MYOCARDIAL INFARCTION [None]
  - SINUS DISORDER [None]
  - TOOTHACHE [None]
